FAERS Safety Report 7053982-6 (Version None)
Quarter: 2010Q4

REPORT INFORMATION
  Report Type: 
  Country: None (occurrence: None)
  Receive Date: 20101014
  Receipt Date: 20101005
  Transmission Date: 20110411
  Serious: Yes (Hospitalization)
  Sender: FDA-Public Use
  Company Number: 720878

PATIENT
  Age: 69 Year
  Sex: Male

DRUGS (4)
  1. ACYCLOVIR [Suspect]
     Indication: ENCEPHALITIS HERPES
     Dosage: 1000 MG MILLIGRAM(S), 3 DAY, INTRAVENOUS (NOT OTHERWISE SPECIFIED)
     Route: 042
     Dates: start: 20100901
  2. (FELODIN) [Concomitant]
  3. SIMVASTATIN [Concomitant]
  4. (VIBRADOX) [Concomitant]

REACTIONS (3)
  - CEREBRAL DISORDER [None]
  - HAEMODIALYSIS [None]
  - RENAL FAILURE ACUTE [None]
